FAERS Safety Report 5736894-7 (Version None)
Quarter: 2008Q2

REPORT INFORMATION
  Report Type: 
  Country: None (occurrence: None)
  Receive Date: 20080509
  Receipt Date: 20080422
  Transmission Date: 20081010
  Serious: Yes (Death, Hospitalization)
  Sender: FDA-Public Use
  Company Number: 2008SP008327

PATIENT
  Age: 77 Year
  Sex: Male

DRUGS (5)
  1. EPTIFIBATIDE (S-P) (EPTIFIBATIDE) [Suspect]
     Indication: THROMBOLYSIS
     Dosage: PARN
     Route: 051
     Dates: start: 20080215, end: 20080215
  2. HEPARIN [Suspect]
     Indication: DRUG USE FOR UNKNOWN INDICATION
     Dosage: IV
     Route: 042
     Dates: start: 20080215
  3. CLOPIDOGREL BISULFATE [Suspect]
     Indication: DRUG USE FOR UNKNOWN INDICATION
     Dosage: PO
     Route: 048
     Dates: start: 20080215
  4. LYSINE ASPIRIN (ACETYLSALICYLATE LYSINE) [Suspect]
     Indication: DRUG USE FOR UNKNOWN INDICATION
     Dosage: PARN
     Route: 051
     Dates: start: 20080215
  5. ASPIRIN [Concomitant]

REACTIONS (4)
  - ALTERED STATE OF CONSCIOUSNESS [None]
  - CEREBRAL ISCHAEMIA [None]
  - DECEREBRATION [None]
  - SUBDURAL HAEMATOMA [None]
